FAERS Safety Report 4677572-5 (Version None)
Quarter: 2005Q2

REPORT INFORMATION
  Report Type: 
  Country: None (occurrence: None)
  Receive Date: 20050526
  Receipt Date: 20050526
  Transmission Date: 20051028
  Serious: No
  Sender: FDA-Public Use
  Company Number: None

PATIENT
  Age: 68 Year
  Sex: Male
  Weight: 87.5442 kg

DRUGS (7)
  1. MONOPRIL [Suspect]
     Indication: HYPERTENSION
     Dosage: 40 MG PO DAILY
     Route: 048
  2. FLUNISOLIDE [Concomitant]
  3. HYDROCHLOROTHIAZIDE [Concomitant]
  4. INSULIN [Concomitant]
  5. LORATADINE [Concomitant]
  6. METOPROLOL [Concomitant]
  7. SIMVASTATIN [Concomitant]

REACTIONS (2)
  - SWELLING FACE [None]
  - SWOLLEN TONGUE [None]
